FAERS Safety Report 7457333-4 (Version None)
Quarter: 2011Q2

REPORT INFORMATION
  Report Type: 
  Country: None (occurrence: None)
  Receive Date: 20110504
  Receipt Date: 20110330
  Transmission Date: 20111010
  Serious: No
  Sender: FDA-Public Use
  Company Number: US-KINGPHARMUSA00001-K201100382

PATIENT
  Age: 58 Year
  Sex: Female

DRUGS (1)
  1. AVINZA [Suspect]
     Indication: INTERVERTEBRAL DISC DEGENERATION
     Dosage: 45 MG, UNK

REACTIONS (1)
  - FATIGUE [None]
